FAERS Safety Report 8861017 (Version 2)
Quarter: 2013Q1

REPORT INFORMATION
  Report Type: Spontaneous
  Country: BR (occurrence: BR)
  Receive Date: 20121025
  Receipt Date: 20130110
  Transmission Date: 20140127
  Serious: Yes (Death, Hospitalization)
  Sender: FDA-Public Use
  Company Number: BR-B.I. PHARMACEUTICALS,INC./RIDGEFIELD-2012-BR-01217BR

PATIENT
  Sex: Female

DRUGS (3)
  1. TRAYENTA [Suspect]
     Indication: DIABETES MELLITUS
     Dosage: 5 MG
     Route: 048
     Dates: start: 201207, end: 20121002
  2. INSULINA [Concomitant]
     Indication: DIABETES MELLITUS
  3. MEDICATION NOT FURTHER SPECIFIED [Concomitant]
     Indication: RENAL FAILURE

REACTIONS (2)
  - Ischaemic stroke [Fatal]
  - Abdominal distension [Not Recovered/Not Resolved]
